FAERS Safety Report 13177851 (Version 1)
Quarter: 2017Q1

REPORT INFORMATION
  Report Type: Spontaneous
  Country: BR (occurrence: BR)
  Receive Date: 20170201
  Receipt Date: 20170201
  Transmission Date: 20170428
  Serious: Yes (Other)
  Sender: FDA-Public Use
  Company Number: PHHY2017BR011973

PATIENT
  Age: 50 Year
  Sex: Female

DRUGS (1)
  1. DESOGESTREL SANDOZ [Suspect]
     Active Substance: DESOGESTREL
     Indication: LEIOMYOMA
     Dosage: 1 DF, QD
     Route: 048
     Dates: start: 20160813

REACTIONS (3)
  - Breast cancer [Unknown]
  - Breast mass [Unknown]
  - Haemorrhage [Unknown]
